FAERS Safety Report 19738621 (Version 3)
Quarter: 2022Q2

REPORT INFORMATION
  Report Type: Spontaneous
  Country: JP (occurrence: JP)
  Receive Date: 20210823
  Receipt Date: 20220517
  Transmission Date: 20220720
  Serious: Yes (Death, Other)
  Sender: FDA-Public Use
  Company Number: JP-JAZZ-2021-JP-015302

PATIENT
  Age: 57 Year
  Sex: Male
  Weight: 66.8 kg

DRUGS (1)
  1. DEFITELIO [Suspect]
     Active Substance: DEFIBROTIDE SODIUM
     Indication: Venoocclusive liver disease
     Dosage: 25 MG/KG DAILY
     Route: 042
     Dates: start: 20210602, end: 20210712

REACTIONS (3)
  - Graft versus host disease [Fatal]
  - Venoocclusive liver disease [Fatal]
  - Multiple organ dysfunction syndrome [Unknown]

NARRATIVE: CASE EVENT DATE: 20210623
